FAERS Safety Report 15852841 (Version 1)
Quarter: 2019Q1

REPORT INFORMATION
  Report Type: Spontaneous
  Country: US (occurrence: US)
  Receive Date: 20190122
  Receipt Date: 20190122
  Transmission Date: 20190417
  Serious: No
  Sender: FDA-Public Use
  Company Number: US-PERRIGO-18US001153

PATIENT
  Age: 58 Year
  Sex: Female
  Weight: 75.74 kg

DRUGS (3)
  1. GABAPENTIN. [Concomitant]
     Active Substance: GABAPENTIN
     Indication: NERVOUS SYSTEM DISORDER
     Dosage: UNK
     Route: 048
     Dates: start: 201711
  2. PERMETHRIN. [Suspect]
     Active Substance: PERMETHRIN
     Dosage: 120 ML, SINGLE
     Route: 061
     Dates: start: 20180131, end: 20180131
  3. PERMETHRIN. [Suspect]
     Active Substance: PERMETHRIN
     Indication: LICE INFESTATION
     Dosage: 120 ML, SINGLE
     Route: 061
     Dates: start: 20180103, end: 20180103

REACTIONS (2)
  - Wrong technique in product usage process [Recovered/Resolved]
  - Alopecia [Not Recovered/Not Resolved]

NARRATIVE: CASE EVENT DATE: 20180103
